FAERS Safety Report 9306109 (Version 1)
Quarter: 2013Q2

REPORT INFORMATION
  Report Type: Spontaneous
  Country: US (occurrence: None)
  Receive Date: 20130514
  Receipt Date: 20130514
  Transmission Date: 20140414
  Serious: Yes (Hospitalization)
  Sender: FDA-Public Use
  Company Number: 2013PROUSA02760

PATIENT
  Age: 81 Year
  Sex: Male
  Weight: 78.5 kg

DRUGS (7)
  1. PROVENGE (SIPULEUCEL-T) SUSPENSION [Suspect]
     Indication: PROSTATE CANCER METASTATIC
     Route: 042
     Dates: start: 20130418, end: 20130418
  2. ATENOLOL (ATENOLOL) [Concomitant]
  3. CALCIUM PLUS VITAMIN D (CALCIUM, COLECALCIFEROL) [Concomitant]
  4. CELEXA (CITALOPRAM HYDROBROMIDE) [Concomitant]
  5. VASOTEC (ENALAPRIL MALEATE) [Concomitant]
  6. ZOCOR (SIMVASTATIN) [Concomitant]
  7. MULTIVITAMIN (VITAMIN NOS) [Concomitant]

REACTIONS (11)
  - Chest discomfort [None]
  - Hypotension [None]
  - Infusion related reaction [None]
  - Diarrhoea [None]
  - Nausea [None]
  - Vomiting [None]
  - Asthenia [None]
  - Rash [None]
  - Pruritus [None]
  - Chills [None]
  - Hypoxia [None]
